FAERS Safety Report 6317533-3 (Version None)
Quarter: 2009Q3

REPORT INFORMATION
  Report Type: 
  Country: None (occurrence: None)
  Receive Date: 20090821
  Receipt Date: 20090810
  Transmission Date: 20100115
  Serious: Yes (Hospitalization)
  Sender: FDA-Public Use
  Company Number: GB-ROCHE-649903

PATIENT
  Age: 47 Year
  Sex: Female

DRUGS (2)
  1. TAMIFLU [Suspect]
     Indication: DRUG USE FOR UNKNOWN INDICATION
     Dosage: DOSE REPORTED AS ^AS ADVISED^.
     Route: 065
     Dates: start: 20090720, end: 20090725
  2. LEVOTHYROXINE SODIUM [Concomitant]

REACTIONS (1)
  - CONTUSION [None]
